FAERS Safety Report 5884771-3 (Version None)
Quarter: 2008Q3

REPORT INFORMATION
  Report Type: 
  Country: None (occurrence: None)
  Receive Date: 20080916
  Receipt Date: 20080905
  Transmission Date: 20090109
  Serious: Yes (Other)
  Sender: FDA-Public Use
  Company Number: CA-AMGEN-QUU306742

PATIENT
  Sex: Female

DRUGS (1)
  1. ENBREL [Suspect]
     Indication: DRUG USE FOR UNKNOWN INDICATION

REACTIONS (6)
  - HEADACHE [None]
  - HYPERSENSITIVITY [None]
  - JUVENILE ARTHRITIS [None]
  - PYREXIA [None]
  - SKIN REACTION [None]
  - URTICARIA [None]
